FAERS Safety Report 10234312 (Version 1)
Quarter: 2014Q2

REPORT INFORMATION
  Report Type: Other
  Country: FR (occurrence: JP)
  Receive Date: 20140612
  Receipt Date: 20140612
  Transmission Date: 20141212
  Serious: Yes (Other)
  Sender: FDA-Public Use
  Company Number: JP-FRI-1000067947

PATIENT
  Age: 77 Year
  Sex: Female

DRUGS (8)
  1. MILNACIPRAN [Suspect]
     Indication: DEPRESSION
     Route: 048
  2. ANAFRANIL [Suspect]
     Indication: DEPRESSION
     Route: 048
  3. TETRAMIDE [Suspect]
     Indication: DEPRESSION
     Route: 048
  4. PROPOFOL [Suspect]
     Indication: GENERAL ANAESTHESIA
     Route: 008
  5. REMIFENTANIL [Suspect]
     Indication: GENERAL ANAESTHESIA
     Route: 008
  6. ROCURONIUM [Suspect]
     Indication: GENERAL ANAESTHESIA
     Route: 008
  7. ROPIVACAINE [Suspect]
     Route: 008
  8. MORPHINE [Concomitant]

REACTIONS (1)
  - Procedural hypotension [Recovered/Resolved]
